FAERS Safety Report 23552553 (Version 1)
Quarter: 2024Q1

REPORT INFORMATION
  Report Type: Spontaneous
  Country: US (occurrence: US)
  Receive Date: 20240222
  Receipt Date: 20240222
  Transmission Date: 20240410
  Serious: Yes (Other)
  Sender: FDA-Public Use
  Company Number: US-PERRIGO-24US001638

PATIENT
  Sex: Female

DRUGS (3)
  1. NICOTINE POLACRILEX [Suspect]
     Active Substance: NICOTINE
     Indication: Smoking cessation therapy
     Dosage: 2 MG, SINGLE
     Route: 002
     Dates: start: 20240104, end: 20240104
  2. NICOTINE POLACRILEX [Suspect]
     Active Substance: NICOTINE
     Dosage: 2 MG, EVERY HOUR AS NEEDED
     Route: 002
     Dates: start: 20240205, end: 20240211
  3. NICOTINE [Suspect]
     Active Substance: NICOTINE
     Indication: Smoking cessation therapy
     Dosage: UNKNOWN, UNKNOWN
     Route: 065
     Dates: start: 202401, end: 2024

REACTIONS (4)
  - Seizure [Recovered/Resolved]
  - Malaise [Unknown]
  - Foaming at mouth [Unknown]
  - Wrong technique in product usage process [Recovered/Resolved]

NARRATIVE: CASE EVENT DATE: 20240104
